FAERS Safety Report 9684480 (Version 1)
Quarter: 2013Q4

REPORT INFORMATION
  Report Type: Report from Study
  Country: DE (occurrence: DE)
  Receive Date: 20131112
  Receipt Date: 20131112
  Transmission Date: 20140711
  Serious: Yes (Other)
  Sender: FDA-Public Use
  Company Number: DE-B.I. PHARMACEUTICALS,INC./RIDGEFIELD-2013-BI-36263DE

PATIENT
  Sex: Female
  Weight: 60 kg

DRUGS (4)
  1. CATAPRESAN [Suspect]
     Dosage: 20 ANZ
     Route: 048
  2. RAMIPRIL [Suspect]
     Dosage: 10 ANZ
     Route: 048
  3. METOPROLOL [Suspect]
     Dosage: 10 ANZ
     Route: 048
  4. SIMVASTATIN [Suspect]
     Route: 048

REACTIONS (2)
  - Suicide attempt [Unknown]
  - Intentional overdose [Unknown]
